FAERS Safety Report 16659225 (Version 2)
Quarter: 2019Q3

REPORT INFORMATION
  Report Type: Other
  Country: US (occurrence: US)
  Receive Date: 20190802
  Receipt Date: 20190929
  Transmission Date: 20191004
  Serious: Yes (Hospitalization, Other)
  Sender: FDA-Public Use
  Company Number: US-GLAND PHARMA LIMITED-2072665

PATIENT
  Age: 73 Year
  Sex: Male

DRUGS (2)
  1. LEVETIRACETAM. [Suspect]
     Active Substance: LEVETIRACETAM
     Indication: SEIZURE
  2. VALPROIC ACID. [Suspect]
     Active Substance: VALPROIC ACID

REACTIONS (1)
  - Parkinsonism [Unknown]
